FAERS Safety Report 25005733 (Version 2)
Quarter: 2025Q2

REPORT INFORMATION
  Report Type: Spontaneous
  Country: FR (occurrence: FR)
  Receive Date: 20250224
  Receipt Date: 20250417
  Transmission Date: 20250717
  Serious: Yes (Other)
  Sender: MYLAN
  Company Number: None

PATIENT
  Age: 60 Year
  Sex: Female

DRUGS (36)
  1. PANTOPRAZOLE [Suspect]
     Active Substance: PANTOPRAZOLE
     Indication: Product used for unknown indication
  2. PANTOPRAZOLE [Suspect]
     Active Substance: PANTOPRAZOLE
     Route: 065
  3. PANTOPRAZOLE [Suspect]
     Active Substance: PANTOPRAZOLE
     Route: 065
  4. PANTOPRAZOLE [Suspect]
     Active Substance: PANTOPRAZOLE
  5. OMEPRAZOLE [Suspect]
     Active Substance: OMEPRAZOLE
     Indication: Product used for unknown indication
     Dosage: 1 DOSAGE FORM, QD
     Route: 048
     Dates: start: 20240226, end: 20240301
  6. OMEPRAZOLE [Suspect]
     Active Substance: OMEPRAZOLE
     Dosage: 1 DOSAGE FORM, QD
     Dates: start: 20240226, end: 20240301
  7. OMEPRAZOLE [Suspect]
     Active Substance: OMEPRAZOLE
     Dosage: 1 DOSAGE FORM, QD
     Dates: start: 20240226, end: 20240301
  8. OMEPRAZOLE [Suspect]
     Active Substance: OMEPRAZOLE
     Dosage: 1 DOSAGE FORM, QD
     Route: 048
     Dates: start: 20240226, end: 20240301
  9. OMEPRAZOLE [Suspect]
     Active Substance: OMEPRAZOLE
     Route: 048
     Dates: start: 20240227, end: 20240227
  10. OMEPRAZOLE [Suspect]
     Active Substance: OMEPRAZOLE
     Dates: start: 20240227, end: 20240227
  11. OMEPRAZOLE [Suspect]
     Active Substance: OMEPRAZOLE
     Dates: start: 20240227, end: 20240227
  12. OMEPRAZOLE [Suspect]
     Active Substance: OMEPRAZOLE
     Route: 048
     Dates: start: 20240227, end: 20240227
  13. RABEPRAZOLE [Suspect]
     Active Substance: RABEPRAZOLE
     Indication: Product used for unknown indication
     Dates: start: 20241125, end: 20241125
  14. RABEPRAZOLE [Suspect]
     Active Substance: RABEPRAZOLE
     Route: 042
     Dates: start: 20241125, end: 20241125
  15. RABEPRAZOLE [Suspect]
     Active Substance: RABEPRAZOLE
     Route: 042
     Dates: start: 20241125, end: 20241125
  16. RABEPRAZOLE [Suspect]
     Active Substance: RABEPRAZOLE
     Dates: start: 20241125, end: 20241125
  17. CALCIUM CARBONATE\SODIUM ALGINATE\SODIUM BICARBONATE [Suspect]
     Active Substance: CALCIUM CARBONATE\SODIUM ALGINATE\SODIUM BICARBONATE
     Dosage: 1 DOSAGE FORM, QD
     Dates: start: 20240226, end: 20240301
  18. CALCIUM CARBONATE\SODIUM ALGINATE\SODIUM BICARBONATE [Suspect]
     Active Substance: CALCIUM CARBONATE\SODIUM ALGINATE\SODIUM BICARBONATE
     Dosage: 1 DOSAGE FORM, QD
     Route: 048
     Dates: start: 20240226, end: 20240301
  19. CALCIUM CARBONATE\SODIUM ALGINATE\SODIUM BICARBONATE [Suspect]
     Active Substance: CALCIUM CARBONATE\SODIUM ALGINATE\SODIUM BICARBONATE
     Dosage: 1 DOSAGE FORM, QD
     Route: 048
     Dates: start: 20240226, end: 20240301
  20. CALCIUM CARBONATE\SODIUM ALGINATE\SODIUM BICARBONATE [Suspect]
     Active Substance: CALCIUM CARBONATE\SODIUM ALGINATE\SODIUM BICARBONATE
     Dosage: 1 DOSAGE FORM, QD
     Dates: start: 20240226, end: 20240301
  21. Gaviscon Peppermint [Concomitant]
     Dosage: 1 DOSAGE FORM, QD
     Route: 048
     Dates: start: 20240226, end: 20240301
  22. Gaviscon Peppermint [Concomitant]
     Dosage: 1 DOSAGE FORM, QD
     Dates: start: 20240226, end: 20240301
  23. Gaviscon Peppermint [Concomitant]
     Dosage: 1 DOSAGE FORM, QD
     Dates: start: 20240226, end: 20240301
  24. Gaviscon Peppermint [Concomitant]
     Dosage: 1 DOSAGE FORM, QD
     Route: 048
     Dates: start: 20240226, end: 20240301
  25. Gaviscon Peppermint [Concomitant]
     Route: 065
     Dates: start: 20240227, end: 20240227
  26. Gaviscon Peppermint [Concomitant]
     Dates: start: 20240227, end: 20240227
  27. Gaviscon Peppermint [Concomitant]
     Dates: start: 20240227, end: 20240227
  28. Gaviscon Peppermint [Concomitant]
     Route: 065
     Dates: start: 20240227, end: 20240227
  29. LEVOTHYROXINE [Concomitant]
     Active Substance: LEVOTHYROXINE
  30. LEVOTHYROXINE [Concomitant]
     Active Substance: LEVOTHYROXINE
     Route: 065
  31. LEVOTHYROXINE [Concomitant]
     Active Substance: LEVOTHYROXINE
     Route: 065
  32. LEVOTHYROXINE [Concomitant]
     Active Substance: LEVOTHYROXINE
  33. IBUPROFEN [Concomitant]
     Active Substance: IBUPROFEN
  34. IBUPROFEN [Concomitant]
     Active Substance: IBUPROFEN
     Route: 065
  35. IBUPROFEN [Concomitant]
     Active Substance: IBUPROFEN
     Route: 065
  36. IBUPROFEN [Concomitant]
     Active Substance: IBUPROFEN

REACTIONS (4)
  - Angioedema [Recovered/Resolved]
  - Allergy test positive [Recovered/Resolved]
  - Cross sensitivity reaction [Recovered/Resolved]
  - Fatigue [Recovered/Resolved]

NARRATIVE: CASE EVENT DATE: 20240301
